FAERS Safety Report 25772557 (Version 1)
Quarter: 2025Q3

REPORT INFORMATION
  Report Type: Spontaneous
  Country: US (occurrence: US)
  Receive Date: 20250908
  Receipt Date: 20250908
  Transmission Date: 20251020
  Serious: Yes (Death)
  Sender: NOVARTIS
  Company Number: US-002147023-NVSC2025US138905

PATIENT
  Sex: Male

DRUGS (2)
  1. TAFINLAR [Suspect]
     Active Substance: DABRAFENIB MESYLATE
     Indication: Malignant melanoma
     Dosage: 150 MG, Q12H(MOUTH)
     Route: 048
     Dates: start: 202507
  2. MEKINIST [Suspect]
     Active Substance: TRAMETINIB DIMETHYL SULFOXIDE
     Indication: Malignant melanoma
     Dosage: 2 MG, QD(MOUTH)
     Route: 048
     Dates: start: 202507

REACTIONS (1)
  - Death [Fatal]
